FAERS Safety Report 8798431 (Version 2)
Quarter: 2012Q4

REPORT INFORMATION
  Report Type: Report from Study
  Country: NZ (occurrence: NZ)
  Receive Date: 20120920
  Receipt Date: 20121018
  Transmission Date: 20130627
  Serious: Yes (Other)
  Sender: FDA-Public Use
  Company Number: NZ-CELGENEUS-118-C5013-12091332

PATIENT
  Age: 61 Year
  Sex: Female
  Weight: 73.7 kg

DRUGS (2)
  1. CC-5013 [Suspect]
     Indication: CLL
     Dosage: 5 Milligram
     Route: 048
     Dates: start: 20110726
  2. AUGMENTIN [Concomitant]
     Indication: COUGH
     Dosage: 1000 Milligram
     Route: 048
     Dates: start: 20120217, end: 20120226

REACTIONS (1)
  - Basal cell carcinoma [Recovered/Resolved]
